FAERS Safety Report 9353682 (Version 4)
Quarter: 2013Q3

REPORT INFORMATION
  Report Type: Spontaneous
  Country: US (occurrence: US)
  Receive Date: 20130618
  Receipt Date: 20130826
  Transmission Date: 20140515
  Serious: Yes (Other)
  Sender: FDA-Public Use
  Company Number: US-PFIZER INC-2013177298

PATIENT
  Sex: Female

DRUGS (3)
  1. PREMARIN [Suspect]
     Indication: HORMONE REPLACEMENT THERAPY
     Dosage: 0.625 MG, 1X/DAY
     Route: 048
     Dates: start: 1989
  2. PREMARIN [Suspect]
     Dosage: 1.25 MG, 1X/DAY
     Route: 048
     Dates: start: 201306
  3. ARICEPT [Concomitant]
     Dosage: UNK

REACTIONS (11)
  - Road traffic accident [Unknown]
  - Cognitive disorder [Unknown]
  - Head injury [Unknown]
  - Memory impairment [Unknown]
  - Disturbance in attention [Unknown]
  - Malaise [Unknown]
  - Vomiting [Unknown]
  - Gait disturbance [Unknown]
  - Drug dispensing error [Unknown]
  - Expired drug administered [Unknown]
  - Drug ineffective [Unknown]
